FAERS Safety Report 8781812 (Version 2)
Quarter: 2012Q4

REPORT INFORMATION
  Report Type: 
  Country: US (occurrence: US)
  Receive Date: 20120913
  Receipt Date: 20121212
  Transmission Date: 20130627
  Serious: Yes (Hospitalization)
  Sender: FDA-Public Use
  Company Number: US-BIOGENIDEC-2012BI036625

PATIENT
  Age: 27 Year
  Sex: Female
  Weight: 72 kg

DRUGS (8)
  1. TYSABRI [Suspect]
     Indication: MULTIPLE SCLEROSIS
     Route: 042
     Dates: start: 20110623
  2. DULCOLAX [Concomitant]
  3. SEASONIQUE [Concomitant]
     Dates: start: 20110623
  4. NUVIGIL [Concomitant]
     Dates: start: 20110523
  5. CAMBLA [Concomitant]
     Indication: HEADACHE
     Dates: start: 20120206
  6. AMPYRA [Concomitant]
     Route: 048
     Dates: start: 20120206
  7. REPLAX [Concomitant]
     Route: 048
     Dates: start: 20120206
  8. ZONISAMIDE [Concomitant]
     Dates: start: 20120206

REACTIONS (5)
  - Multiple sclerosis relapse [Unknown]
  - Micturition urgency [Unknown]
  - Pollakiuria [Unknown]
  - Depression [Unknown]
  - Mobility decreased [Recovered/Resolved]
